FAERS Safety Report 24698263 (Version 2)
Quarter: 2025Q1

REPORT INFORMATION
  Report Type: Report from Study
  Country: CA (occurrence: CA)
  Receive Date: 20241204
  Receipt Date: 20250101
  Transmission Date: 20250409
  Serious: Yes (Other)
  Sender: IPSEN BIOPHARMACEUTICALS, INC.
  Company Number: CA-IPSEN Group, Research and Development-2024-18003

PATIENT
  Age: 66 Year
  Sex: Female

DRUGS (12)
  1. LANREOTIDE ACETATE [Suspect]
     Active Substance: LANREOTIDE ACETATE
     Indication: Gastroenteropancreatic neuroendocrine tumour disease
     Dosage: DEEP SUBCUTANEOUS
     Route: 058
     Dates: start: 20230224
  2. EVEROLIMUS [Suspect]
     Active Substance: EVEROLIMUS
     Indication: Product used for unknown indication
     Dosage: EVEROLIMUS 5 MG 1 CO DIE PO ET
     Route: 048
  3. EVEROLIMUS [Suspect]
     Active Substance: EVEROLIMUS
     Dosage: INCREASED TO 10 MG 1 CO DIE
     Route: 048
     Dates: start: 20241019
  4. SYNTHROID [Concomitant]
     Active Substance: LEVOTHYROXINE SODIUM
     Dosage: SYNTHROID 0.75 MG 1 CO DIE
  5. TIAZAC [Concomitant]
     Active Substance: DILTIAZEM HYDROCHLORIDE
     Dosage: TIAZAC 180 MH 1 CO DIE
  6. DEXILAN [Concomitant]
     Dosage: DEXILAN 60 MG 1 CO DIE
  7. VIT D [VITAMIN D NOS] [Concomitant]
     Dosage: VIT D 1000 MG 1 CO DIE
  8. ATORVASTATIN [Concomitant]
     Active Substance: ATORVASTATIN
     Dosage: ATORVASTATIN 20 MG 1 CO DIE
  9. LAMOTRIGINE [Concomitant]
     Active Substance: LAMOTRIGINE
     Dosage: LAMOTRIGINE 100 MG BID
  10. DEXAMETHASONE [Concomitant]
     Active Substance: DEXAMETHASONE
  11. LOPERAMIDE [Concomitant]
     Active Substance: LOPERAMIDE
     Route: 048
  12. PROCHLORAZINE [Concomitant]
     Dosage: PROCHLORAZINE 10 MG 1 CO Q 6 HRES PRN

REACTIONS (7)
  - Bronchitis [Recovered/Resolved]
  - Renal mass [Not Recovered/Not Resolved]
  - Hepatic mass [Not Recovered/Not Resolved]
  - Fall [Unknown]
  - Ligament sprain [Not Recovered/Not Resolved]
  - Tenderness [Not Recovered/Not Resolved]
  - Fall [Not Recovered/Not Resolved]

NARRATIVE: CASE EVENT DATE: 20240817
